FAERS Safety Report 6231224-9 (Version None)
Quarter: 2009Q2

REPORT INFORMATION
  Report Type: 
  Country: None (occurrence: None)
  Receive Date: 20090616
  Receipt Date: 20090609
  Transmission Date: 20091009
  Serious: Yes (Hospitalization)
  Sender: FDA-Public Use
  Company Number: US-ASTRAZENECA-2009UW14773

PATIENT
  Age: 15723 Day
  Sex: Female

DRUGS (1)
  1. NEXIUM [Suspect]
     Route: 048
     Dates: start: 20090509

REACTIONS (2)
  - GASTROOESOPHAGEAL REFLUX DISEASE [None]
  - NEPHROLITHIASIS [None]
